FAERS Safety Report 5201055-7 (Version None)
Quarter: 2007Q1

REPORT INFORMATION
  Report Type: 
  Country: None (occurrence: None)
  Receive Date: 20070103
  Receipt Date: 20061221
  Transmission Date: 20070707
  Serious: Yes (Hospitalization)
  Sender: FDA-Public Use
  Company Number: GXKR2006GB08467

PATIENT
  Age: 47 Year
  Sex: Male

DRUGS (6)
  1. OMEPRAZOLE [Suspect]
     Indication: DRUG USE FOR UNKNOWN INDICATION
     Dosage: 40 MG, ORAL
     Route: 048
  2. CO-CODAMOL (CODEINE PHOSPHATE, PARACETAMOL) [Concomitant]
  3. CO-CODAPRIN (ACETYLSALICYLIC ACID, CODEINE PHOSPHATE) [Concomitant]
  4. NITRAZEPAM [Concomitant]
  5. SALBUTAMOL (SALBUTAMOL) [Concomitant]
  6. SODIUM CROMOGLICATE (CROMOGLICATE SODIUM) [Concomitant]

REACTIONS (9)
  - ABDOMINAL PAIN UPPER [None]
  - BLISTER [None]
  - DIZZINESS [None]
  - HEADACHE [None]
  - MALAISE [None]
  - RASH PRURITIC [None]
  - SOMNOLENCE [None]
  - SYNCOPE [None]
  - VISION BLURRED [None]
